FAERS Safety Report 8836544 (Version 1)
Quarter: 2012Q4

REPORT INFORMATION
  Report Type: Spontaneous
  Country: US (occurrence: None)
  Receive Date: 20121009
  Receipt Date: 20121009
  Transmission Date: 20130627
  Serious: Yes (Other)
  Sender: FDA-Public Use
  Company Number: E2B_00000408

PATIENT
  Age: 57 Year
  Sex: Female
  Weight: 89.81 kg

DRUGS (12)
  1. LEVOFLOXACIN [Suspect]
     Indication: BLADDER INFECTION
     Route: 048
     Dates: start: 20120730, end: 20120730
  2. WARFARIN [Suspect]
     Indication: THROMBOSIS PROPHYLAXIS
     Route: 048
  3. TOLTERODINE TARTRATE (DETROL) [Concomitant]
  4. METFORMIN [Concomitant]
  5. BENAZEPRIL [Concomitant]
  6. CITALOPRAM [Concomitant]
  7. PREGABALIN (LYRICA) [Concomitant]
  8. METOPROLOL [Concomitant]
  9. SIMVASTATIN [Concomitant]
  10. MAGNESIUM OXIDE [Concomitant]
  11. FENTANYL PATCH [Concomitant]
  12. ACETAMINOPHEN + HYDROCODONE  (LORTAB) [Concomitant]

REACTIONS (5)
  - Muscle spasms [None]
  - Pain in extremity [None]
  - International normalised ratio increased [None]
  - Drug interaction [None]
  - Contusion [None]
